FAERS Safety Report 25120269 (Version 2)
Quarter: 2025Q3

REPORT INFORMATION
  Report Type: Spontaneous
  Country: EU (occurrence: EU)
  Receive Date: 20250325
  Receipt Date: 20250724
  Transmission Date: 20251020
  Serious: Yes (Other)
  Sender: VIIV
  Company Number: EU-VIIV HEALTHCARE-DK2025EME033494

PATIENT
  Age: 55 Year
  Sex: Male
  Weight: 79 kg

DRUGS (7)
  1. CABOTEGRAVIR [Suspect]
     Active Substance: CABOTEGRAVIR
     Indication: HIV infection
     Dosage: 600 MG, Q2M
  2. CABOTEGRAVIR [Suspect]
     Active Substance: CABOTEGRAVIR
  3. CABOTEGRAVIR [Suspect]
     Active Substance: CABOTEGRAVIR
  4. RILPIVIRINE [Suspect]
     Active Substance: RILPIVIRINE
     Indication: HIV infection
     Dosage: 900 MG, Q2M
  5. METHIMAZOLE [Concomitant]
     Active Substance: METHIMAZOLE
     Indication: Product used for unknown indication
     Dosage: 5 MG, QD
  6. METHIMAZOLE [Concomitant]
     Active Substance: METHIMAZOLE
     Dosage: 2.5 MG, QD
  7. SILDENAFIL [Concomitant]
     Active Substance: SILDENAFIL
     Indication: Product used for unknown indication

REACTIONS (3)
  - Virologic failure [Unknown]
  - Pathogen resistance [Unknown]
  - Viral mutation identified [Unknown]

NARRATIVE: CASE EVENT DATE: 20250205
